FAERS Safety Report 15778690 (Version 3)
Quarter: 2019Q1

REPORT INFORMATION
  Report Type: Report from Study
  Country: AU (occurrence: AU)
  Receive Date: 20181231
  Receipt Date: 20190124
  Transmission Date: 20190417
  Serious: Yes (Other)
  Sender: FDA-Public Use
  Company Number: AU-ROCHE-2237992

PATIENT
  Sex: Male

DRUGS (1)
  1. RANIBIZUMAB. [Suspect]
     Active Substance: RANIBIZUMAB
     Indication: CHORIORETINOPATHY
     Route: 031

REACTIONS (4)
  - Disease recurrence [Unknown]
  - Off label use [Unknown]
  - Chorioretinopathy [Unknown]
  - Product use in unapproved indication [Unknown]
